FAERS Safety Report 8150432-3 (Version None)
Quarter: 2012Q1

REPORT INFORMATION
  Report Type: 
  Country: None (occurrence: None)
  Receive Date: 20120220
  Receipt Date: 20120215
  Transmission Date: 20120608
  Serious: Yes (Death)
  Sender: FDA-Public Use
  Company Number: GB-PFIZER INC-2012037873

PATIENT
  Age: 63 Year
  Sex: Male
  Weight: 89.3 kg

DRUGS (19)
  1. ATORVASTATIN [Concomitant]
     Indication: HYPERCHOLESTEROLAEMIA
     Dosage: 40 MG, 1X/DAY
     Route: 048
     Dates: start: 20091101
  2. SPIRIVA [Concomitant]
     Indication: CHRONIC OBSTRUCTIVE PULMONARY DISEASE
     Dosage: 18 UG, 2X/DAY
     Route: 055
     Dates: start: 20091101
  3. SUCRALFATE [Concomitant]
     Indication: MUCOSAL INFLAMMATION
     Dosage: 1 G, 4X/DAY
     Route: 048
     Dates: start: 20090712
  4. CYCLIZINE [Concomitant]
     Indication: NAUSEA
     Dosage: 50 MG, 3X/DAY
     Route: 048
     Dates: start: 20120209
  5. SUNITINIB MALATE [Suspect]
     Indication: PALLIATIVE CARE
     Dosage: 25 MG, 1X/DAY
     Route: 048
     Dates: start: 20100617
  6. ISOSORBIDE MONONITRATE [Concomitant]
     Indication: ANGINA PECTORIS
     Dosage: 10 MG, 2X/DAY
     Route: 048
     Dates: start: 20081001
  7. ACETYLSALICYLIC ACID [Concomitant]
     Indication: ANGINA PECTORIS
     Dosage: 75 MG, 1X/DAY
     Route: 048
     Dates: start: 20091101
  8. LANSOPRAZOLE [Concomitant]
     Indication: GASTROOESOPHAGEAL REFLUX DISEASE
     Dosage: 30 MG, 1X/DAY
     Route: 048
     Dates: start: 20090101
  9. VENTOLIN [Concomitant]
     Indication: CHRONIC OBSTRUCTIVE PULMONARY DISEASE
     Dosage: 5 MG, 4X/DAY AS NEEDED
     Dates: start: 20091101
  10. CANDESARTAN [Concomitant]
     Indication: HYPERTENSION
     Dosage: 4 MG, 1X/DAY
     Route: 048
     Dates: start: 20081001
  11. LOPERAMIDE [Concomitant]
     Indication: DIARRHOEA
     Dosage: 2 MG, AS NEEDED
     Route: 048
     Dates: start: 20100312
  12. METOCLOPRAMIDE [Concomitant]
     Indication: NAUSEA
     Dosage: 10 MG, 3X/DAY
     Route: 048
     Dates: start: 20111215, end: 20120208
  13. METOPROLOL [Concomitant]
     Indication: HYPERTENSION
     Dosage: 50 MG, 1X/DAY
     Route: 048
     Dates: start: 20091101
  14. ZOPICLONE [Concomitant]
     Indication: SEDATION
     Dosage: 3.75 MG, 1X/DAY
     Route: 048
     Dates: start: 20091101
  15. SALBUTAMOL [Concomitant]
     Indication: CHRONIC OBSTRUCTIVE PULMONARY DISEASE
     Dosage: 100 UG, AS NEEDED
     Route: 055
     Dates: start: 20091101
  16. OXYCODONE HCL [Concomitant]
     Indication: PROCTALGIA
     Dosage: 5 MG, AS NEEDED
     Route: 048
     Dates: start: 20111101
  17. MAGNESIUM GLYCEROPHOSPHATE [Concomitant]
     Indication: BLOOD MAGNESIUM DECREASED
     Dosage: UNK
     Route: 048
     Dates: start: 20120112
  18. ANUSOL [Concomitant]
     Indication: PROCTALGIA
     Dosage: UNK
     Route: 061
     Dates: start: 20100712
  19. DIPROBASE CREAM [Concomitant]
     Indication: RASH
     Dosage: UNK
     Route: 061
     Dates: start: 20120112

REACTIONS (1)
  - PULMONARY EMBOLISM [None]
